FAERS Safety Report 23226830 (Version 8)
Quarter: 2023Q4

REPORT INFORMATION
  Report Type: Report from Study
  Country: CA (occurrence: CA)
  Receive Date: 20231124
  Receipt Date: 20231226
  Transmission Date: 20240110
  Serious: Yes (Other)
  Sender: FDA-Public Use
  Company Number: CA-AstraZeneca-2023A259091

PATIENT
  Sex: Female

DRUGS (1)
  1. ENHERTU [Suspect]
     Active Substance: FAM-TRASTUZUMAB DERUXTECAN-NXKI
     Indication: HER2 positive breast cancer
     Dosage: 299.2 MG, ONCE EVERY 3 WK
     Route: 042
     Dates: start: 20221028

REACTIONS (9)
  - Toxicity to various agents [Unknown]
  - Full blood count decreased [Unknown]
  - Cytopenia [Unknown]
  - Pneumonia [Unknown]
  - Influenza [Unknown]
  - Weight decreased [Unknown]
  - Feeding disorder [Unknown]
  - Nasopharyngitis [Unknown]
  - Malaise [Unknown]

NARRATIVE: CASE EVENT DATE: 20230101
